FAERS Safety Report 25702960 (Version 5)
Quarter: 2025Q4

REPORT INFORMATION
  Report Type: Report from Study
  Country: EU (occurrence: EU)
  Receive Date: 20250819
  Receipt Date: 20251016
  Transmission Date: 20260117
  Serious: Yes (Death, Hospitalization, Other)
  Sender: ABBVIE
  Company Number: EU-ABBVIE-6419645

PATIENT
  Age: 84 Year
  Sex: Male

DRUGS (7)
  1. CARBIDOPA [Suspect]
     Active Substance: CARBIDOPA
     Indication: Parkinson^s disease
     Dosage: MD: 8,4 ML/H, CR DAY-TIME: 3,3 ML/H, ED: 1,7ML.
     Route: 050
     Dates: start: 20230221, end: 20250904
  2. CARBIDOPA [Suspect]
     Active Substance: CARBIDOPA
  3. CALCITONIN [Concomitant]
     Active Substance: CALCITONIN
     Indication: Product used for unknown indication
  4. POLYETHYLENE GLYCOL 3350\POTASSIUM CHLORIDE\SODIUM BICARBONATE\SODIUM [Concomitant]
     Active Substance: POLYETHYLENE GLYCOL 3350\POTASSIUM CHLORIDE\SODIUM BICARBONATE\SODIUM CHLORIDE
     Indication: Constipation
     Dosage: MOLAXOLE BTL
     Route: 048
  5. BENSERAZIDE HYDROCHLORIDE\LEVODOPA [Concomitant]
     Active Substance: BENSERAZIDE HYDROCHLORIDE\LEVODOPA
     Indication: Parkinson^s disease
     Dosage: MADOPAR CR 100/25
  6. ONGENTYS [Concomitant]
     Active Substance: OPICAPONE
     Indication: Parkinson^s disease
  7. RIVASTIGMINE [Concomitant]
     Active Substance: RIVASTIGMINE
     Indication: Product used for unknown indication
     Route: 062
     Dates: start: 20230222

REACTIONS (7)
  - Death [Fatal]
  - General physical health deterioration [Not Recovered/Not Resolved]
  - Intentional medical device removal by patient [Recovered/Resolved]
  - Vomiting [Unknown]
  - Viral infection [Unknown]
  - Intentional medical device removal by patient [Not Recovered/Not Resolved]
  - Pneumonia [Not Recovered/Not Resolved]

NARRATIVE: CASE EVENT DATE: 20250804
